FAERS Safety Report 16338000 (Version 2)
Quarter: 2019Q2

REPORT INFORMATION
  Report Type: Report from Study
  Country: US (occurrence: US)
  Receive Date: 20190521
  Receipt Date: 20190610
  Transmission Date: 20190711
  Serious: Yes (Hospitalization, Other)
  Sender: FDA-Public Use
  Company Number: US-BRISTOL-MYERS SQUIBB COMPANY-BMS-2019-047561

PATIENT
  Age: 57 Year
  Sex: Male
  Weight: 67.1 kg

DRUGS (2)
  1. IPILIMUMAB [Suspect]
     Active Substance: IPILIMUMAB
     Indication: GASTROINTESTINAL STROMAL TUMOUR
     Dosage: 1 MILLIGRAM/KILOGRAM, Q6WK
     Route: 042
     Dates: start: 20170329, end: 20170329
  2. NIVOLUMAB [Suspect]
     Active Substance: NIVOLUMAB
     Indication: GASTROINTESTINAL STROMAL TUMOUR
     Dosage: 240 MILLIGRAM, Q2WK
     Route: 042
     Dates: start: 20170329, end: 20170410

REACTIONS (10)
  - Chronic kidney disease [Unknown]
  - Acidosis [Unknown]
  - Hyperbilirubinaemia [Unknown]
  - Weight decreased [Unknown]
  - Acute kidney injury [Unknown]
  - Hepatic function abnormal [Unknown]
  - Failure to thrive [Unknown]
  - Malignant neoplasm progression [Unknown]
  - Transaminases increased [Unknown]
  - Dehydration [Unknown]

NARRATIVE: CASE EVENT DATE: 20170502
